FAERS Safety Report 10428124 (Version 1)
Quarter: 2014Q3

REPORT INFORMATION
  Report Type: Spontaneous
  Country: US (occurrence: US)
  Receive Date: 20140903
  Receipt Date: 20140903
  Transmission Date: 20150326
  Serious: Yes (Other)
  Sender: FDA-Public Use
  Company Number: US-BAUSCH-BL-2014-004142

PATIENT
  Age: 22 Year
  Sex: Male
  Weight: 113.5 kg

DRUGS (4)
  1. ATROPINE SULFATE. [Suspect]
     Active Substance: ATROPINE SULFATE
     Indication: EYE INFECTION
     Route: 047
     Dates: start: 2014
  2. BESIVANCE [Suspect]
     Active Substance: BESIFLOXACIN
     Indication: EYE INFECTION
     Route: 047
     Dates: start: 2014
  3. DORZOLAMIDE [Suspect]
     Active Substance: DORZOLAMIDE
     Indication: EYE INFECTION
     Route: 047
     Dates: start: 2014, end: 2014
  4. ALPHAGAN P [Suspect]
     Active Substance: BRIMONIDINE TARTRATE
     Indication: EYE INFECTION
     Route: 047
     Dates: start: 2014, end: 2014

REACTIONS (3)
  - Eye inflammation [Not Recovered/Not Resolved]
  - Blindness [Not Recovered/Not Resolved]
  - Eye irritation [Not Recovered/Not Resolved]

NARRATIVE: CASE EVENT DATE: 20140819
